FAERS Safety Report 12463759 (Version 1)
Quarter: 2016Q2

REPORT INFORMATION
  Report Type: Spontaneous
  Country: JP (occurrence: JP)
  Receive Date: 20160614
  Receipt Date: 20160614
  Transmission Date: 20160815
  Serious: Yes (Death, Other)
  Sender: FDA-Public Use
  Company Number: JP-BRISTOL-MYERS SQUIBB COMPANY-BMS-2015-093941

PATIENT
  Age: 72 Year
  Sex: Male

DRUGS (1)
  1. OPDIVO [Suspect]
     Active Substance: NIVOLUMAB
     Indication: ACRAL LENTIGINOUS MELANOMA STAGE IV
     Route: 041

REACTIONS (3)
  - Pneumonia [Recovering/Resolving]
  - Death [Fatal]
  - Leukoderma [Unknown]
